FAERS Safety Report 12646759 (Version 1)
Quarter: 2016Q3

REPORT INFORMATION
  Report Type: Report from Study
  Country: FR (occurrence: FR)
  Receive Date: 20160812
  Receipt Date: 20160812
  Transmission Date: 20161109
  Serious: Yes (Other)
  Sender: FDA-Public Use
  Company Number: FR-ROCHE-1810952

PATIENT
  Sex: Female
  Weight: 104 kg

DRUGS (3)
  1. VIEKIRAX [Suspect]
     Active Substance: OMBITASVIR\PARITAPREVIR\RITONAVIR
     Indication: HEPATITIS VIRAL
     Route: 048
     Dates: start: 20150409, end: 20150921
  2. BIPRETERAX [Concomitant]
     Active Substance: INDAPAMIDE\PERINDOPRIL
     Indication: HYPERTENSION
     Dosage: 1 DF = 10 MG/2.5 MG
     Route: 048
     Dates: start: 20150401, end: 20151026
  3. RIBAVIRIN. [Suspect]
     Active Substance: RIBAVIRIN
     Indication: HEPATITIS VIRAL
     Route: 048
     Dates: start: 20150409, end: 20150921

REACTIONS (1)
  - VIIIth nerve injury [Recovered/Resolved with Sequelae]

NARRATIVE: CASE EVENT DATE: 201505
